FAERS Safety Report 8811289 (Version 1)
Quarter: 2012Q4

REPORT INFORMATION
  Report Type: 
  Country: CA (occurrence: CA)
  Receive Date: 20120927
  Receipt Date: 20120927
  Transmission Date: 20130627
  Serious: Yes (Hospitalization)
  Sender: FDA-Public Use
  Company Number: CA-RANBAXY-2012US-60404

PATIENT
  Age: 7 Day
  Sex: Male

DRUGS (1)
  1. PARACETAMOL + CODEINE [Suspect]
     Indication: EXPOSURE DURING BREAST FEEDING
     Dosage: UNK
     Route: 063

REACTIONS (2)
  - Depressed level of consciousness [Recovering/Resolving]
  - Exposure during breast feeding [Unknown]
